FAERS Safety Report 25015040 (Version 2)
Quarter: 2025Q2

REPORT INFORMATION
  Report Type: Spontaneous
  Country: PE (occurrence: PE)
  Receive Date: 20250226
  Receipt Date: 20250409
  Transmission Date: 20250717
  Serious: Yes (Other)
  Sender: SEPTODONT
  Company Number: None

PATIENT
  Age: 44 Year
  Sex: Male

DRUGS (5)
  1. LIGNOSPAN STANDARD [Suspect]
     Active Substance: EPINEPHRINE BITARTRATE\LIDOCAINE HYDROCHLORIDE
     Indication: Local anaesthesia
     Route: 004
  2. SODIUM HYPOCHLORITE [Concomitant]
     Active Substance: SODIUM HYPOCHLORITE
     Indication: Irrigation therapy
  3. 30 G, 21 mm needle (Nipro Pharma Packaging, Millville, NJ, USA [Concomitant]
  4. Reciproc  R40 (VDW GmbH, Munich, Germany) [Concomitant]
  5. K-file #10 (Denstply-Maillefer, Ballaiguess,Switzerland) [Concomitant]

REACTIONS (4)
  - Numb chin syndrome [Recovered/Resolved]
  - Injection site pain [Recovered/Resolved]
  - Hypoaesthesia [Recovered/Resolved]
  - Electric shock sensation [Recovered/Resolved]
